FAERS Safety Report 4348112-5 (Version None)
Quarter: 2004Q2

REPORT INFORMATION
  Report Type: 
  Country: None (occurrence: None)
  Receive Date: 20040422
  Receipt Date: 20040409
  Transmission Date: 20050107
  Serious: Yes (Hospitalization)
  Sender: FDA-Public Use
  Company Number: 2004-BP-02220EX

PATIENT
  Age: 63 Year
  Sex: Female

DRUGS (2)
  1. LEUCOVORIN CALCIUM [Suspect]
     Indication: COLON CANCER
     Dosage: 75 MG, PO
     Route: 048
     Dates: start: 20040107, end: 20040203
  2. UFT [Suspect]
     Indication: COLON CANCER
     Dosage: 5 CAPSULES PER DAY, PO
     Route: 048
     Dates: start: 20040107, end: 20040203

REACTIONS (4)
  - ALANINE AMINOTRANSFERASE INCREASED [None]
  - ASPARTATE AMINOTRANSFERASE INCREASED [None]
  - BLOOD BILIRUBIN INCREASED [None]
  - EOSINOPHIL COUNT INCREASED [None]
